FAERS Safety Report 16959650 (Version 1)
Quarter: 2019Q4

REPORT INFORMATION
  Report Type: Spontaneous
  Country: GB (occurrence: GB)
  Receive Date: 20191025
  Receipt Date: 20191025
  Transmission Date: 20200122
  Serious: Yes (Disabling, Other)
  Sender: FDA-Public Use
  Company Number: GB-TEVA-2019-GB-1127092

PATIENT
  Age: 49 Year
  Sex: Male
  Weight: 90 kg

DRUGS (3)
  1. PROPRANOLOL [Suspect]
     Active Substance: PROPRANOLOL HYDROCHLORIDE
     Indication: ANXIETY
     Dosage: 1-3 A DAY, 21 DAYS
     Route: 048
     Dates: start: 20190530, end: 20190620
  2. HALOPERIDOL. [Concomitant]
     Active Substance: HALOPERIDOL
     Dosage: 4 DAYS
     Dates: start: 20190510, end: 20190514
  3. FLUOXETINE [Interacting]
     Active Substance: FLUOXETINE HYDROCHLORIDE
     Indication: OBSESSIVE-COMPULSIVE DISORDER
     Dosage: 20 THEN 60, 60 MG/ DAY
     Route: 048

REACTIONS (8)
  - Drug interaction [Unknown]
  - Ear discomfort [Unknown]
  - Tinnitus [Not Recovered/Not Resolved]
  - Drug dose titration not performed [Unknown]
  - Vision blurred [Not Recovered/Not Resolved]
  - Lacrimation increased [Recovered/Resolved]
  - Vitreous floaters [Recovered/Resolved]
  - Cataract [Unknown]

NARRATIVE: CASE EVENT DATE: 20190602
